FAERS Safety Report 18813938 (Version 3)
Quarter: 2021Q2

REPORT INFORMATION
  Report Type: Spontaneous
  Country: US (occurrence: US)
  Receive Date: 20210201
  Receipt Date: 20210525
  Transmission Date: 20210717
  Serious: No
  Sender: FDA-Public Use
  Company Number: US-TOLMAR, INC.-21US024981

PATIENT
  Age: 86 Year
  Sex: Male

DRUGS (1)
  1. LIDOCAINE AND PRILOCAINE [Suspect]
     Active Substance: LIDOCAINE\PRILOCAINE
     Indication: PROCEDURAL PAIN
     Dosage: UNK, 3/WEEK
     Route: 061
     Dates: start: 202003

REACTIONS (3)
  - Circumstance or information capable of leading to medication error [Unknown]
  - Product packaging difficult to open [Unknown]
  - Wrong technique in product usage process [Unknown]

NARRATIVE: CASE EVENT DATE: 202012
